FAERS Safety Report 13463258 (Version 2)
Quarter: 2017Q2

REPORT INFORMATION
  Report Type: Spontaneous
  Country: IT (occurrence: IT)
  Receive Date: 20170420
  Receipt Date: 20170508
  Transmission Date: 20170830
  Serious: Yes (Hospitalization)
  Sender: FDA-Public Use
  Company Number: IT-KADMON PHARMACEUTICALS, LLC-KAD201704-000638

PATIENT
  Age: 73 Year
  Sex: Male

DRUGS (2)
  1. SOVALDI [Suspect]
     Active Substance: SOFOSBUVIR
     Indication: CHRONIC HEPATITIS C
     Dosage: TABLET
     Dates: start: 20150225, end: 20170302
  2. RIBAVIRIN 200 MG [Suspect]
     Active Substance: RIBAVIRIN
     Indication: CHRONIC HEPATITIS C
     Dosage: THREE TABLETS IN THE MORNING AND TWO TABLETS IN THE EVENING
     Dates: start: 20150225, end: 20170302

REACTIONS (1)
  - Myasthenia gravis crisis [Recovering/Resolving]
